FAERS Safety Report 12747221 (Version 1)
Quarter: 2016Q3

REPORT INFORMATION
  Report Type: Spontaneous
  Country: JP (occurrence: JP)
  Receive Date: 20160915
  Receipt Date: 20160915
  Transmission Date: 20161109
  Serious: Yes (Other)
  Sender: FDA-Public Use
  Company Number: JP-MYLANLABS-2016M1038756

PATIENT

DRUGS (4)
  1. ZOLEDRONIC ACID [Suspect]
     Active Substance: ZOLEDRONIC ACID
     Indication: METASTATIC SALIVARY GLAND CANCER
     Route: 065
  2. DOCETAXEL. [Suspect]
     Active Substance: DOCETAXEL
     Indication: METASTATIC SALIVARY GLAND CANCER
     Dosage: 70MG/M2 TRIWEEKLY
     Route: 065
  3. TRASTUZUMAB [Suspect]
     Active Substance: TRASTUZUMAB
     Indication: METASTATIC SALIVARY GLAND CANCER
     Dosage: LOADING DOSE OF 8MG/KG FOLLOWED BY 6MG/KG TRIWEEKLY
     Route: 065
  4. TRASTUZUMAB [Suspect]
     Active Substance: TRASTUZUMAB
     Dosage: 6MG/KG TRIWEEKLY
     Route: 065

REACTIONS (6)
  - Oedema [Unknown]
  - Anaemia [Unknown]
  - Leukopenia [Unknown]
  - Hypocalcaemia [Unknown]
  - Neutropenia [Unknown]
  - Decreased appetite [Unknown]
